FAERS Safety Report 7015100-X (Version None)
Quarter: 2010Q3

REPORT INFORMATION
  Report Type: 
  Country: None (occurrence: None)
  Receive Date: 20100927
  Receipt Date: 20100322
  Transmission Date: 20110219
  Serious: No
  Sender: FDA-Public Use
  Company Number: US-ASTRAZENECA-2010SE12496

PATIENT
  Age: 79 Year
  Sex: Female
  Weight: 131.5 kg

DRUGS (1)
  1. ARIMIDEX [Suspect]
     Route: 048
     Dates: start: 20100201

REACTIONS (1)
  - BLOOD GLUCOSE INCREASED [None]
